FAERS Safety Report 4775040-3 (Version None)
Quarter: 2005Q3

REPORT INFORMATION
  Report Type: 
  Country: None (occurrence: None)
  Receive Date: 20050921
  Receipt Date: 20050622
  Transmission Date: 20060218
  Serious: Yes (Other)
  Sender: FDA-Public Use
  Company Number: PHBS2005BE09174

PATIENT
  Age: 69 Year
  Sex: Female
  Weight: 71 kg

DRUGS (15)
  1. ELTHYRONE [Concomitant]
     Route: 065
  2. XANAX [Concomitant]
     Route: 065
     Dates: start: 20041101
  3. LORAZEPAM [Concomitant]
     Route: 065
     Dates: start: 20030701
  4. ZOMETA [Suspect]
     Indication: METASTASES TO BONE
     Dosage: 4 MG, QMO
     Route: 042
     Dates: start: 20021009, end: 20050330
  5. AREDIA [Suspect]
     Dosage: 30 MG, UNK
     Dates: start: 19930101
  6. RADIATION THERAPY [Concomitant]
     Dates: start: 19930101
  7. RADIATION THERAPY [Concomitant]
     Dates: start: 19970101
  8. RADIATION THERAPY [Concomitant]
     Dates: start: 19980101
  9. CYCLOPHOSPHAMIDE + 5-FU + METHOTREXATE [Concomitant]
     Dates: start: 19810101
  10. ORIMETEN [Concomitant]
     Dates: start: 19930101
  11. NOLVADEX [Concomitant]
     Dates: start: 19810101
  12. ARIMIDEX [Concomitant]
     Dates: start: 19980101
  13. 5-FU + EPIRUBICIN + CYCLOPHOSPHAMIDE [Concomitant]
     Dates: start: 20021001, end: 20030401
  14. AROMASIN [Concomitant]
     Dates: start: 20030401
  15. FASLODEX [Concomitant]
     Dates: start: 20041101

REACTIONS (5)
  - ASEPTIC NECROSIS BONE [None]
  - BONE DENSITY INCREASED [None]
  - INTESTINAL ADENOCARCINOMA [None]
  - METASTASES TO BONE [None]
  - METASTASES TO LUNG [None]
